FAERS Safety Report 9678988 (Version 1)
Quarter: 2013Q4

REPORT INFORMATION
  Report Type: Spontaneous
  Country: GB (occurrence: GB)
  Receive Date: 20131108
  Receipt Date: 20131108
  Transmission Date: 20140711
  Serious: Yes (Disabling)
  Sender: FDA-Public Use
  Company Number: GB-WATSON-2013-20562

PATIENT
  Age: 85 Year
  Sex: Male
  Weight: 73 kg

DRUGS (12)
  1. METFORMIN (UNKNOWN) [Suspect]
     Indication: TYPE 2 DIABETES MELLITUS
     Dosage: UNK; 500
     Route: 065
     Dates: start: 2002
  2. METFORMIN (UNKNOWN) [Suspect]
     Dosage: UNK; 500
     Route: 065
     Dates: start: 2002
  3. METFORMIN (UNKNOWN) [Suspect]
     Dosage: UNK; 500
     Route: 065
     Dates: start: 2002
  4. CANDESARTAN [Concomitant]
     Indication: HYPERTENSION
     Dosage: 4 MG, DAILY
     Route: 065
     Dates: start: 20020402
  5. CANDESARTAN [Concomitant]
     Dosage: 2 MG, DAILY
     Route: 065
     Dates: start: 20020402
  6. BENDROFLUMETHIAZIDE [Concomitant]
     Indication: HYPERTENSION
     Dosage: 2.5 MG, DAILY
     Route: 065
     Dates: start: 20040721
  7. WARFARIN [Concomitant]
     Indication: ATRIAL FIBRILLATION
     Dosage: 5 MG, UNKNOWN
     Route: 065
     Dates: start: 20050524
  8. WARFARIN [Concomitant]
     Dosage: 1 MG, UNKNOWN
     Route: 065
     Dates: start: 20050524
  9. WARFARIN [Concomitant]
     Dosage: 3 MG, UNKNOWN
     Route: 065
     Dates: start: 20050524
  10. VITAMIN B12                        /06860901/ [Concomitant]
     Indication: VITAMIN B12 DEFICIENCY
     Dosage: 1000 MG, ONCE EVERY 3 MONTHS
     Route: 065
     Dates: start: 20050506
  11. MOVICOL                            /01749801/ [Concomitant]
     Indication: CONSTIPATION
     Dosage: 13.8 G, BID
     Route: 065
     Dates: start: 20130402
  12. BISOPROLOL [Concomitant]
     Indication: BLOOD PRESSURE INCREASED
     Dosage: 1.25 MG, DAILY
     Route: 065
     Dates: start: 20130508

REACTIONS (2)
  - Gait disturbance [Not Recovered/Not Resolved]
  - Blood creatinine increased [Unknown]
